FAERS Safety Report 4875113-0 (Version None)
Quarter: 2006Q1

REPORT INFORMATION
  Report Type: 
  Country: None (occurrence: None)
  Receive Date: 20060109
  Receipt Date: 20060105
  Transmission Date: 20060701
  Serious: Yes (Death, Hospitalization)
  Sender: FDA-Public Use
  Company Number: UG-GLAXOSMITHKLINE-B0405637A

PATIENT
  Age: 40 Year
  Sex: Female

DRUGS (6)
  1. COMBIVIR [Suspect]
     Indication: HIV INFECTION
     Dosage: 1TAB TWICE PER DAY
     Route: 048
     Dates: start: 20030709, end: 20030919
  2. TENOFOVIR [Suspect]
     Indication: HIV INFECTION
     Dosage: 300MG PER DAY
     Route: 048
     Dates: start: 20030709, end: 20030919
  3. ISONIAZID [Suspect]
  4. RIFAMPICIN [Suspect]
  5. PYRAZINAMIDE [Suspect]
  6. COTRIM [Concomitant]

REACTIONS (4)
  - ASTHENIA [None]
  - HEPATITIS [None]
  - OCULAR ICTERUS [None]
  - VOMITING [None]
